FAERS Safety Report 19101603 (Version 1)
Quarter: 2021Q2

REPORT INFORMATION
  Report Type: Report from Study
  Country: None (occurrence: US)
  Receive Date: 20210407
  Receipt Date: 20210407
  Transmission Date: 20210717
  Serious: Yes (Hospitalization)
  Sender: FDA-Public Use
  Company Number: US-ABBVIE-20K-163-3617413-00

PATIENT
  Age: 85 Year
  Sex: Male

DRUGS (2)
  1. VENCLEXTA [Suspect]
     Active Substance: VENETOCLAX
     Route: 048
     Dates: start: 20201008
  2. VENCLEXTA [Suspect]
     Active Substance: VENETOCLAX
     Indication: ACUTE MYELOID LEUKAEMIA
     Route: 048
     Dates: start: 202009, end: 2020

REACTIONS (13)
  - Cerebral haemorrhage [Unknown]
  - Flatulence [Unknown]
  - Abdominal distension [Unknown]
  - Abdominal pain upper [Unknown]
  - Blood pressure abnormal [Unknown]
  - Fluid imbalance [Unknown]
  - Nausea [Unknown]
  - Vomiting [Unknown]
  - Blood creatinine abnormal [Unknown]
  - Platelet count decreased [Unknown]
  - Asthenia [Unknown]
  - Constipation [Unknown]
  - Blood sodium abnormal [Unknown]

NARRATIVE: CASE EVENT DATE: 2020
